FAERS Safety Report 5092797-5 (Version None)
Quarter: 2006Q3

REPORT INFORMATION
  Report Type: 
  Country: None (occurrence: None)
  Receive Date: 20060828
  Receipt Date: 20060811
  Transmission Date: 20061208
  Serious: Yes (Death, Other)
  Sender: FDA-Public Use
  Company Number: USA-2006-0024917

PATIENT
  Age: 8 Year
  Sex: Female

DRUGS (2)
  1. MORPHINE SULFATE [Suspect]
     Indication: ACCIDENTAL DRUG INTAKE BY CHILD
  2. OXYCODONE HCL [Suspect]
     Indication: ACCIDENTAL DRUG INTAKE BY CHILD

REACTIONS (26)
  - AMMONIA INCREASED [None]
  - ATELECTASIS [None]
  - BOWEL SOUNDS ABNORMAL [None]
  - BRAIN DEATH [None]
  - BRAIN OEDEMA [None]
  - CHEST X-RAY ABNORMAL [None]
  - COMA [None]
  - DEPRESSED LEVEL OF CONSCIOUSNESS [None]
  - DRUG SCREEN POSITIVE [None]
  - DRUG TOXICITY [None]
  - HYPERHIDROSIS [None]
  - INJURY [None]
  - MENTAL STATUS CHANGES [None]
  - METABOLIC ACIDOSIS [None]
  - MIOSIS [None]
  - MULTI-ORGAN DISORDER [None]
  - MULTIPLE DRUG OVERDOSE ACCIDENTAL [None]
  - PNEUMONIA ASPIRATION [None]
  - PULMONARY OEDEMA [None]
  - RENAL FAILURE [None]
  - RESPIRATORY FAILURE [None]
  - RHABDOMYOLYSIS [None]
  - SINUS TACHYCARDIA [None]
  - SOMNOLENCE [None]
  - THERAPY NON-RESPONDER [None]
  - VOMITING [None]
